FAERS Safety Report 19846893 (Version 1)
Quarter: 2021Q3

REPORT INFORMATION
  Report Type: Spontaneous
  Country: US (occurrence: US)
  Receive Date: 20210917
  Receipt Date: 20210917
  Transmission Date: 20211014
  Serious: Yes (Other)
  Sender: FDA-Public Use
  Company Number: None

PATIENT
  Age: 14 Year
  Sex: Male
  Weight: 78.75 kg

DRUGS (1)
  1. GUANFACINE ER [Suspect]
     Active Substance: GUANFACINE
     Indication: ATTENTION DEFICIT HYPERACTIVITY DISORDER
     Route: 048
     Dates: start: 20180202, end: 20180430

REACTIONS (5)
  - Aggression [None]
  - Irritability [None]
  - Product substitution issue [None]
  - Affect lability [None]
  - Neurodevelopmental disorder [None]

NARRATIVE: CASE EVENT DATE: 20180222
